FAERS Safety Report 9348939 (Version 2)
Quarter: 2013Q2

REPORT INFORMATION
  Report Type: Spontaneous
  Country: AU (occurrence: AU)
  Receive Date: 20130614
  Receipt Date: 20130620
  Transmission Date: 20140414
  Serious: Yes (Other)
  Sender: FDA-Public Use
  Company Number: AU-009507513-1306AUS005618

PATIENT
  Age: 68 Year
  Sex: Male

DRUGS (9)
  1. JANUVIA [Suspect]
     Dosage: 1 B.D
     Route: 048
  2. ASTRIX [Concomitant]
     Dosage: 1 DAILY
     Route: 048
  3. COVERSYL (PERINDOPRIL ARGININE) [Concomitant]
     Dosage: 1 MANE
     Route: 048
  4. DIABEX [Concomitant]
     Dosage: 4 NOCTE C.C
     Route: 048
  5. DIABEX [Concomitant]
     Indication: TYPE 2 DIABETES MELLITUS
     Dosage: 1000 MG, 1
  6. DIAMICRON [Concomitant]
     Dosage: 2 MANE C.C
     Route: 048
  7. GABAPENTIN [Concomitant]
     Dosage: 1 T.I.D
     Route: 048
  8. LIPITOR [Concomitant]
     Dosage: 1 NOCTE M.D.U
     Route: 048
  9. ZYLOPRIM [Concomitant]
     Dosage: ONE MANE
     Route: 048

REACTIONS (5)
  - Hepatitis [Recovered/Resolved]
  - Arthralgia [Recovered/Resolved]
  - Inappropriate schedule of drug administration [Unknown]
  - Cerebral ischaemia [Unknown]
  - Blood pressure inadequately controlled [Unknown]
